FAERS Safety Report 9040095 (Version 1)
Quarter: 2013Q1

REPORT INFORMATION
  Report Type: Spontaneous
  Country: US (occurrence: US)
  Receive Date: 20130130
  Receipt Date: 20130130
  Transmission Date: 20140127
  Serious: No
  Sender: FDA-Public Use
  Company Number: US-ABBOTT-12P-163-0952093-00

PATIENT
  Age: 58 Year
  Sex: Female
  Weight: 67.19 kg

DRUGS (2)
  1. HUMIRA 40 MG/0.8 ML PEN [Suspect]
     Indication: RHEUMATOID ARTHRITIS
     Dates: start: 2011
  2. PREMPRO [Concomitant]
     Indication: MENOPAUSE
     Dosage: 4.5MG DAILY, ONCE A DAY

REACTIONS (4)
  - Injection site vesicles [Recovered/Resolved]
  - Injection site pain [Recovered/Resolved]
  - Injection site nodule [Recovered/Resolved]
  - Device malfunction [Recovered/Resolved]
